FAERS Safety Report 8795729 (Version 1)
Quarter: 2012Q4

REPORT INFORMATION
  Report Type: 
  Country: BE (occurrence: BE)
  Receive Date: 20120919
  Receipt Date: 20120919
  Transmission Date: 20130627
  Serious: Yes (Life-Threatening)
  Sender: FDA-Public Use
  Company Number: BE-B.I. PHARMACEUTICALS,INC./RIDGEFIELD-2012-BL-00506BL

PATIENT
  Age: 62 Year
  Sex: Female
  Weight: 89 kg

DRUGS (4)
  1. PRADAXA [Suspect]
     Indication: EMBOLISM VENOUS
     Dosage: 220 mg
     Route: 048
     Dates: start: 20120809, end: 20120812
  2. PARACETAMOL [Concomitant]
     Dosage: 3 g
     Route: 048
     Dates: start: 20120809
  3. TARADYL [Concomitant]
     Indication: INFLAMMATION
     Dosage: 30 mg
     Route: 042
     Dates: start: 20120809, end: 20120811
  4. DICLOFENAC [Concomitant]
     Indication: INFLAMMATION
     Dosage: 144 mg
     Route: 048
     Dates: start: 20120811, end: 20120812

REACTIONS (4)
  - Haematochezia [Recovered/Resolved]
  - Blood pressure decreased [Recovered/Resolved]
  - Anaemia [Recovered/Resolved]
  - Anxiety [Recovered/Resolved]
